FAERS Safety Report 22635648 (Version 2)
Quarter: 2023Q2

REPORT INFORMATION
  Report Type: Report from Study
  Country: CA (occurrence: CA)
  Receive Date: 20230623
  Receipt Date: 20230630
  Transmission Date: 20230722
  Serious: Yes (Death, Other)
  Sender: FDA-Public Use
  Company Number: CA-TAKEDA-2023TUS061324

PATIENT
  Age: 10 Year
  Sex: Male

DRUGS (3)
  1. HUMAN IMMUNOGLOBULIN G [Suspect]
     Active Substance: HUMAN IMMUNOGLOBULIN G
     Indication: Primary immunodeficiency syndrome
     Dosage: 3 GRAM, 1/WEEK
     Route: 050
     Dates: start: 20180612
  2. HUMAN IMMUNOGLOBULIN G [Suspect]
     Active Substance: HUMAN IMMUNOGLOBULIN G
     Dosage: 3 GRAM, 1/WEEK
     Route: 058
  3. SULFAMETHOXAZOLE [Concomitant]
     Active Substance: SULFAMETHOXAZOLE
     Dosage: UNK
     Route: 065

REACTIONS (1)
  - Complications of bone marrow transplant [Fatal]

NARRATIVE: CASE EVENT DATE: 20221201
